FAERS Safety Report 8370929-0 (Version None)
Quarter: 2012Q1

REPORT INFORMATION
  Report Type: 
  Country: None (occurrence: None)
  Receive Date: 20120323
  Receipt Date: 20110127
  Transmission Date: 20120608
  Serious: Yes (Other)
  Sender: FDA-Public Use
  Company Number: 163-21880-11012989

PATIENT
  Sex: Male

DRUGS (10)
  1. ALEVE (NAPROXEN SODIUM) (UNKNOWN) [Concomitant]
  2. REVLIMID [Suspect]
     Indication: MULTIPLE MYELOMA
     Dosage: 25 MG, 1 IN 1 D, PO
     Route: 048
     Dates: start: 20070801
  3. CRESTOR (ROSUVASTATIN) (UNKNOWN) [Concomitant]
  4. ASMANEX (MOMETASONE FUROATE) (UNKNOWN) [Concomitant]
  5. NASOCORT (BUDESONIDE) (UNKNOWN) [Concomitant]
  6. GABAPENTIN [Concomitant]
  7. FLOMAX (UNKNOWN) [Concomitant]
  8. COUMADIN [Concomitant]
  9. SINGULAIR (MONTELUKAST SODIUM) (UNKNOWN) [Concomitant]
  10. NEXIUM [Concomitant]

REACTIONS (2)
  - PULMONARY EMBOLISM [None]
  - WHITE BLOOD CELL COUNT DECREASED [None]
